FAERS Safety Report 6893155-0 (Version None)
Quarter: 2010Q3

REPORT INFORMATION
  Report Type: 
  Country: None (occurrence: None)
  Receive Date: 20100731
  Receipt Date: 20090609
  Transmission Date: 20110219
  Serious: No
  Sender: FDA-Public Use
  Company Number: US-PFIZER INC-2009225132

PATIENT
  Sex: Female
  Weight: 57.6 kg

DRUGS (1)
  1. ANTIVERT [Suspect]
     Indication: DIZZINESS
     Dosage: 12.5 MG, 4X/DAY EVERY DAY

REACTIONS (2)
  - DRUG DOSE OMISSION [None]
  - MALAISE [None]
